FAERS Safety Report 5147047-8 (Version None)
Quarter: 2006Q4

REPORT INFORMATION
  Report Type: 
  Country: None (occurrence: None)
  Receive Date: 20061102
  Receipt Date: 20061023
  Transmission Date: 20070319
  Serious: Yes (Hospitalization, Disabling)
  Sender: FDA-Public Use
  Company Number: 229923

PATIENT
  Age: 51 Year
  Sex: Female

DRUGS (3)
  1. BEVACIZUMAB OR PLACEBO (BEVACIZUMAB)PWDR + SOLVENT, INFUSION SOLN, 100 [Suspect]
     Indication: BREAST CANCER METASTATIC
     Dosage: 1384.5, Q3W, INTRAVENOUS
     Route: 042
     Dates: start: 20060331
  2. TAXOTERE [Suspect]
     Indication: BREAST CANCER METASTATIC
     Dosage: 146 MG
     Dates: start: 20060331
  3. VICODIN [Concomitant]

REACTIONS (10)
  - ABDOMINAL PAIN LOWER [None]
  - BACTERIAL INFECTION [None]
  - CULTURE TISSUE SPECIMEN POSITIVE [None]
  - DIARRHOEA [None]
  - ESCHERICHIA INFECTION [None]
  - PAIN [None]
  - PROTEUS INFECTION [None]
  - SKIN NECROSIS [None]
  - STAPHYLOCOCCAL INFECTION [None]
  - SUBCUTANEOUS ABSCESS [None]
